FAERS Safety Report 6829781-4 (Version None)
Quarter: 2010Q3

REPORT INFORMATION
  Report Type: 
  Country: None (occurrence: None)
  Receive Date: 20100709
  Receipt Date: 20070820
  Transmission Date: 20110219
  Serious: No
  Sender: FDA-Public Use
  Company Number: US-PFIZER INC-2007011146

PATIENT
  Sex: Female
  Weight: 42.6 kg

DRUGS (1)
  1. CHANTIX [Suspect]
     Dates: start: 20061101

REACTIONS (3)
  - DRUG INTOLERANCE [None]
  - DYSGEUSIA [None]
  - NAUSEA [None]
